FAERS Safety Report 18883640 (Version 2)
Quarter: 2021Q1

REPORT INFORMATION
  Report Type: Spontaneous
  Country: US (occurrence: US)
  Receive Date: 20210211
  Receipt Date: 20210222
  Transmission Date: 20210420
  Serious: Yes (Other)
  Sender: FDA-Public Use
  Company Number: US-BEH-2021128277

PATIENT
  Sex: Female

DRUGS (2)
  1. HIZENTRA [Suspect]
     Active Substance: HUMAN IMMUNOGLOBULIN G
     Indication: HUMORAL IMMUNE DEFECT
     Dosage: 6 GRAM, QOW
     Route: 058
     Dates: start: 20200902
  2. HIZENTRA [Suspect]
     Active Substance: HUMAN IMMUNOGLOBULIN G
     Indication: EPILEPSY
     Dosage: 6 UNK
     Route: 058
     Dates: start: 20200311

REACTIONS (9)
  - Aggression [Unknown]
  - No adverse event [Unknown]
  - Ileus [Unknown]
  - Irritability [Unknown]
  - Weight decreased [Unknown]
  - Off label use [Unknown]
  - Decreased appetite [Unknown]
  - Sinusitis [Unknown]
  - Pyrexia [Unknown]
